FAERS Safety Report 7911301-4 (Version None)
Quarter: 2011Q4

REPORT INFORMATION
  Report Type: 
  Country: None (occurrence: None)
  Receive Date: 20111109
  Receipt Date: 20111101
  Transmission Date: 20120403
  Serious: Yes (Hospitalization)
  Sender: FDA-Public Use
  Company Number: DSA_48100_2011

PATIENT
  Sex: Male

DRUGS (1)
  1. XENAZINE [Suspect]
     Indication: TOURETTE'S DISORDER
     Dosage: (12.5 MG QD ORAL)
     Route: 048
     Dates: start: 20110922

REACTIONS (3)
  - ARRHYTHMIA [None]
  - COGNITIVE DISORDER [None]
  - INSOMNIA [None]
